FAERS Safety Report 6949148-8 (Version None)
Quarter: 2010Q3

REPORT INFORMATION
  Report Type: 
  Country: None (occurrence: None)
  Receive Date: 20100828
  Receipt Date: 20091207
  Transmission Date: 20110219
  Serious: No
  Sender: FDA-Public Use
  Company Number: US-ABBOTT-09P-163-0613467-00

PATIENT
  Sex: Male
  Weight: 95.34 kg

DRUGS (10)
  1. NIASPAN [Suspect]
     Indication: BLOOD CHOLESTEROL INCREASED
     Route: 048
     Dates: start: 20090101, end: 20090501
  2. NIASPAN [Suspect]
     Route: 048
     Dates: start: 20091101
  3. LAMISIL [Concomitant]
     Indication: TINEA PEDIS
     Route: 048
     Dates: start: 20090101
  4. HYDROCHLOROTHIAZIDE [Concomitant]
     Indication: DIURETIC THERAPY
     Route: 048
  5. DILTIAZEM [Concomitant]
     Indication: HYPERTENSION
     Route: 048
  6. TOPAMAX [Concomitant]
     Indication: TREMOR
     Dosage: UNSURE OF STRENGTH
     Route: 048
  7. ATENOLOL [Concomitant]
     Indication: CARDIAC DISORDER
     Dosage: 1/2 TABLET QD
     Route: 048
  8. COUMADIN [Concomitant]
     Indication: ATRIAL FIBRILLATION
     Dosage: TUES, THURS 6MG  REST OF WEEK 5MG
     Route: 048
  9. DIGOXIN [Concomitant]
     Indication: CARDIAC DISORDER
     Route: 048
  10. LOVASTATIN [Concomitant]
     Indication: BLOOD CHOLESTEROL
     Route: 048

REACTIONS (1)
  - PRURITUS [None]
